FAERS Safety Report 5014156-3 (Version None)
Quarter: 2006Q2

REPORT INFORMATION
  Report Type: 
  Country: None (occurrence: None)
  Receive Date: 20060414
  Receipt Date: 20060203
  Transmission Date: 20061013
  Serious: No
  Sender: FDA-Public Use
  Company Number: 2006SP000614

PATIENT
  Age: 80 Year
  Sex: Male
  Weight: 83.0083 kg

DRUGS (9)
  1. LUNESTA [Suspect]
     Indication: INITIAL INSOMNIA
     Dosage: 2 MG;HS;ORAL
     Route: 048
     Dates: start: 20060101, end: 20060101
  2. STARLIX [Concomitant]
  3. CARDIZEM [Concomitant]
  4. ISOSORBIDE [Concomitant]
  5. PLAVIX [Concomitant]
  6. NEXIUM [Concomitant]
  7. IRON [Concomitant]
  8. ARANESP [Concomitant]
  9. AMBIEN [Concomitant]

REACTIONS (1)
  - DYSGEUSIA [None]
